FAERS Safety Report 6309228-7 (Version None)
Quarter: 2009Q3

REPORT INFORMATION
  Report Type: 
  Country: None (occurrence: None)
  Receive Date: 20090814
  Receipt Date: 20090806
  Transmission Date: 20100115
  Serious: Yes (Other)
  Sender: FDA-Public Use
  Company Number: CH-PFIZER INC-2009250936

PATIENT

DRUGS (6)
  1. NORVASC [Suspect]
     Indication: ESSENTIAL HYPERTENSION
     Dosage: 5 MG, 1X/DAY
     Route: 064
     Dates: start: 20080524, end: 20080818
  2. TRANDATE [Suspect]
     Indication: ESSENTIAL HYPERTENSION
     Dosage: 200 MG, 2X/DAY
     Route: 064
     Dates: start: 20080412, end: 20080523
  3. CELESTONE [Suspect]
     Dosage: UNK
     Route: 064
     Dates: start: 20080811, end: 20080811
  4. BENZYLPENICILLIN [Suspect]
     Dosage: UNK
     Route: 064
     Dates: start: 20080811, end: 20080818
  5. ERYTHROCINE [Suspect]
     Dosage: 250 MG, 4X/DAY
     Route: 064
     Dates: start: 20080811, end: 20080818
  6. GYNIPRAL [Concomitant]
     Dosage: UNK
     Route: 064
     Dates: start: 20080811, end: 20080817

REACTIONS (9)
  - ANAEMIA NEONATAL [None]
  - CYST [None]
  - DRUG EXPOSURE DURING PREGNANCY [None]
  - HYPERBILIRUBINAEMIA [None]
  - HYPERNATRAEMIA [None]
  - HYPOKALAEMIA [None]
  - HYPOTENSION [None]
  - NEONATAL RESPIRATORY DISTRESS SYNDROME [None]
  - PREMATURE BABY [None]
